FAERS Safety Report 6560105-6 (Version None)
Quarter: 2010Q1

REPORT INFORMATION
  Report Type: 
  Country: None (occurrence: None)
  Receive Date: 20100129
  Receipt Date: 20050202
  Transmission Date: 20100710
  Serious: Yes (Hospitalization)
  Sender: FDA-Public Use
  Company Number: US-ALLERGAN, LTD-200313737

PATIENT
  Age: 38 Year
  Sex: Female
  Weight: 50.909 kg

DRUGS (9)
  1. BOTOX COSMETIC [Suspect]
     Indication: SKIN WRINKLING
     Dosage: 20UNITS, PRN
     Route: 030
     Dates: start: 20030918, end: 20030918
  2. BOTOX COSMETIC [Suspect]
     Dosage: 24UNITS, PRN
     Route: 030
     Dates: start: 20030923, end: 20030923
  3. UNSPECIFIED ANTIBIOTICS [Concomitant]
     Indication: DRUG USE FOR UNKNOWN INDICATION
     Dates: start: 20031021
  4. IBUPROFEN [Concomitant]
     Indication: CHEST PAIN
     Dosage: 600MG, Q6HR
     Route: 048
  5. DEMEROL [Concomitant]
     Indication: CHEST PAIN
  6. MORPHINE [Concomitant]
     Indication: PAIN
     Dates: start: 20031115
  7. AMBIEN [Concomitant]
     Indication: DRUG USE FOR UNKNOWN INDICATION
     Dates: start: 20031115
  8. VICODIN [Concomitant]
     Indication: DRUG USE FOR UNKNOWN INDICATION
     Dates: start: 20031115
  9. UNSPECIFIED STEROID [Concomitant]
     Indication: EUSTACHIAN TUBE DISORDER
     Dates: start: 20031021

REACTIONS (12)
  - ABDOMINAL DISTENSION [None]
  - DRUG TOXICITY [None]
  - DYSPHAGIA [None]
  - DYSPNOEA [None]
  - EUSTACHIAN TUBE DISORDER [None]
  - FATIGUE [None]
  - LYMPHADENOPATHY [None]
  - NAUSEA [None]
  - NERVE INJURY [None]
  - PAINFUL RESPIRATION [None]
  - PNEUMONIA [None]
  - UPPER RESPIRATORY TRACT INFECTION [None]
